FAERS Safety Report 19821777 (Version 2)
Quarter: 2021Q3

REPORT INFORMATION
  Report Type: Spontaneous
  Country: US (occurrence: US)
  Receive Date: 20210913
  Receipt Date: 20210927
  Transmission Date: 20211014
  Serious: No
  Sender: FDA-Public Use
  Company Number: US-AMGEN INC.-USASP2021137979

PATIENT
  Age: 58 Year
  Sex: Female
  Weight: 47.17 kg

DRUGS (1)
  1. AIMOVIG [Suspect]
     Active Substance: ERENUMAB-AOOE
     Indication: MIGRAINE
     Dosage: 70 MILLIGRAM
     Route: 065
     Dates: start: 2018

REACTIONS (10)
  - Product administered at inappropriate site [Unknown]
  - Incorrect disposal of product [Unknown]
  - Weight decreased [Unknown]
  - Device difficult to use [Unknown]
  - Nerve injury [Unknown]
  - Accidental exposure to product [Unknown]
  - Incorrect dose administered by device [Unknown]
  - Musculoskeletal disorder [Unknown]
  - Wrong technique in product usage process [Unknown]
  - Illness [Unknown]

NARRATIVE: CASE EVENT DATE: 202101
